FAERS Safety Report 11911493 (Version 1)
Quarter: 2016Q1

REPORT INFORMATION
  Report Type: Spontaneous
  Country: US (occurrence: US)
  Receive Date: 20160112
  Receipt Date: 20160112
  Transmission Date: 20160526
  Serious: No
  Sender: FDA-Public Use
  Company Number: US-PFIZER INC-2016006891

PATIENT

DRUGS (1)
  1. LYRICA [Suspect]
     Active Substance: PREGABALIN
     Dosage: 75 MG,  (10 CAPSULES A DAY)
     Route: 063

REACTIONS (3)
  - Exposure during breast feeding [Unknown]
  - Underweight [Unknown]
  - Maternal exposure during pregnancy [Unknown]
